FAERS Safety Report 18458683 (Version 1)
Quarter: 2020Q4

REPORT INFORMATION
  Report Type: Spontaneous
  Country: FR (occurrence: FR)
  Receive Date: 20201103
  Receipt Date: 20201103
  Transmission Date: 20210114
  Serious: Yes (Hospitalization)
  Sender: FDA-Public Use
  Company Number: NVSC2020FR287993

PATIENT
  Age: 67 Year
  Sex: Female

DRUGS (7)
  1. NEORAL [Suspect]
     Active Substance: CYCLOSPORINE
     Dosage: UNK
     Route: 048
     Dates: start: 20200417
  2. CLOXACILLIN [Suspect]
     Active Substance: CLOXACILLIN
     Dosage: UNK
     Route: 065
     Dates: start: 20200413
  3. NEORAL [Suspect]
     Active Substance: CYCLOSPORINE
     Indication: CARDIAC FAILURE ACUTE
     Dosage: 100 MG, QD
     Route: 048
     Dates: start: 20180328, end: 20180417
  4. XENETIC 350 [Suspect]
     Active Substance: IOBITRIDOL
     Indication: COMPUTERISED TOMOGRAM
     Dosage: 110 ML
     Route: 042
     Dates: start: 20180329, end: 20180329
  5. FUROSEMIDE. [Suspect]
     Active Substance: FUROSEMIDE
     Indication: CARDIAC FAILURE
     Dosage: 20 MG
     Route: 048
     Dates: start: 20180329, end: 20180330
  6. CLOXACILLIN [Suspect]
     Active Substance: CLOXACILLIN
     Indication: ENDOCARDITIS
     Dosage: 9 G, QD
     Route: 042
     Dates: start: 20180328
  7. GENTAMICINE [Suspect]
     Active Substance: GENTAMICIN
     Indication: ENDOCARDITIS
     Dosage: 210 MG, ONCE/SINGLE
     Route: 042
     Dates: start: 20180328, end: 20180328

REACTIONS (1)
  - Acute kidney injury [Recovered/Resolved]

NARRATIVE: CASE EVENT DATE: 20180330
